FAERS Safety Report 9517180 (Version 1)
Quarter: 2013Q1

REPORT INFORMATION
  Report Type: Spontaneous
  Country: US (occurrence: None)
  Receive Date: 20130305
  Receipt Date: 20130305
  Transmission Date: 20140127
  Serious: Yes (Hospitalization)
  Sender: FDA-Public Use
  Company Number: 163-21880-12113534

PATIENT
  Age: 81 Year
  Sex: Male
  Weight: 56.7 kg

DRUGS (4)
  1. REVLIMID [Suspect]
     Indication: PLASMA CELL MYELOMA
     Route: 048
     Dates: start: 201201
  2. TRAMADOL [Concomitant]
  3. OMEPRAZOLE [Concomitant]
  4. ZOLPIDEM [Concomitant]

REACTIONS (3)
  - Weight decreased [None]
  - Abdominal discomfort [None]
  - Pancytopenia [None]
